FAERS Safety Report 7935935-6 (Version None)
Quarter: 2011Q4

REPORT INFORMATION
  Report Type: 
  Country: None (occurrence: None)
  Receive Date: 20111123
  Receipt Date: 20111115
  Transmission Date: 20120403
  Serious: Yes (Hospitalization)
  Sender: FDA-Public Use
  Company Number: DE-UCBSA-011166

PATIENT
  Age: 62 Year
  Sex: Male
  Weight: 104 kg

DRUGS (7)
  1. REWODINA DUAL [Concomitant]
     Indication: RHEUMATOID ARTHRITIS
     Dates: start: 20090807
  2. CERTOLIZUMAB PEGOL [Suspect]
     Indication: RHEUMATOID ARTHRITIS
     Dosage: 7 DOSES
     Route: 058
     Dates: start: 20100201, end: 20100407
  3. METHOTREXATE SODIUM [Concomitant]
     Dosage: QS
     Route: 058
     Dates: start: 20100315, end: 20101104
  4. METHOTREXATE [Concomitant]
     Indication: RHEUMATOID ARTHRITIS
     Dates: start: 20090515, end: 20100314
  5. METHOTREXATE [Concomitant]
     Dates: start: 20090521
  6. PREDNISOLONE [Concomitant]
     Indication: RHEUMATOID ARTHRITIS
     Dates: start: 20080401, end: 20101104
  7. METHOTREXATE SODIUM [Concomitant]
     Indication: RHEUMATOID ARTHRITIS
     Dosage: QS
     Route: 058
     Dates: start: 20090515, end: 20100201

REACTIONS (1)
  - ESCHERICHIA SEPSIS [None]
